FAERS Safety Report 9514645 (Version 1)
Quarter: 2013Q1

REPORT INFORMATION
  Report Type: Spontaneous
  Country: US (occurrence: None)
  Receive Date: 20130305
  Receipt Date: 20130305
  Transmission Date: 20140127
  Serious: Yes (Other)
  Sender: FDA-Public Use
  Company Number: 163-21880-12112176

PATIENT
  Age: 79 Year
  Sex: Male

DRUGS (8)
  1. REVLIMID [Suspect]
     Indication: MYELODYSPLASTIC SYNDROME
     Route: 048
     Dates: start: 20120419
  2. ZOCOR (SIMVASTATIN) [Concomitant]
  3. COREG (CARVEDILOL) [Concomitant]
  4. GEMFIBROZIL [Concomitant]
  5. FIBERLAX (PLANTAGO OVATA SEEK HUSK) [Concomitant]
  6. FUROSEMIDE [Concomitant]
  7. METOCLOPRAMIDE [Concomitant]
  8. ALTACE (RAMIPRIL) [Concomitant]

REACTIONS (1)
  - Full blood count decreased [None]
